FAERS Safety Report 7774644-3 (Version None)
Quarter: 2011Q3

REPORT INFORMATION
  Report Type: 
  Country: None (occurrence: None)
  Receive Date: 20110923
  Receipt Date: 20110912
  Transmission Date: 20111222
  Serious: Yes (Hospitalization)
  Sender: FDA-Public Use
  Company Number: US-PFIZER INC-2011197771

PATIENT
  Age: 62 Year
  Sex: Female
  Weight: 68.7 kg

DRUGS (11)
  1. LISINOPRIL [Concomitant]
  2. METFORMIN [Concomitant]
  3. CARBOPLATIN [Suspect]
     Indication: ENDOMETRIAL CANCER
     Dosage: 413 MG, AUC = 5 IV OVER 30 MINUTES ON DAY 1 X 6 CYCLES
     Route: 042
     Dates: start: 20110406, end: 20110629
  4. METOPROLOL [Concomitant]
  5. ZOFRAN [Concomitant]
  6. AMLODIPINE [Concomitant]
  7. DEXAMETHASONE [Concomitant]
  8. TEMSIROLIMUS [Suspect]
     Indication: ENDOMETRIAL CANCER
     Dosage: 25 MG, OVER 30 MIN. ON DAYS 1 AND 8 X 6 CYCLES
     Route: 042
     Dates: start: 20110406, end: 20110629
  9. COUMADIN [Concomitant]
  10. HYDROCHLOROTHIAZIDE [Concomitant]
  11. PACLITAXEL [Suspect]
     Indication: ENDOMETRIAL CANCER
     Dosage: 175 MG/M2 OVER 3 HOURS ON DAY 1 X 6 CYCLES
     Route: 042
     Dates: start: 20110406, end: 20110629

REACTIONS (7)
  - BLOOD CREATINE PHOSPHOKINASE INCREASED [None]
  - EXTRAVASATION [None]
  - HYPOKALAEMIA [None]
  - BLOOD CREATININE INCREASED [None]
  - DEHYDRATION [None]
  - INJECTION SITE REACTION [None]
  - HYPERGLYCAEMIA [None]
